FAERS Safety Report 10776877 (Version 10)
Quarter: 2019Q2

REPORT INFORMATION
  Report Type: Spontaneous
  Country: US (occurrence: US)
  Receive Date: 20150209
  Receipt Date: 20190423
  Transmission Date: 20190711
  Serious: Yes (Hospitalization, Other)
  Sender: FDA-Public Use
  Company Number: US-PFIZER INC-2015052099

PATIENT
  Age: 72 Year
  Sex: Female
  Weight: 63 kg

DRUGS (13)
  1. PREMARIN [Suspect]
     Active Substance: ESTROGENS, CONJUGATED
     Indication: HORMONE THERAPY
  2. METOPROLOL. [Concomitant]
     Active Substance: METOPROLOL
     Dosage: 25 MG, 1X/DAY
  3. PREMARIN [Suspect]
     Active Substance: ESTROGENS, CONJUGATED
     Indication: AFFECTIVE DISORDER
  4. LISINOPRIL. [Concomitant]
     Active Substance: LISINOPRIL
     Indication: HYPERTENSION
     Dosage: 5 MG, DAILY
  5. ASPIRIN. [Concomitant]
     Active Substance: ASPIRIN
     Indication: STENT PLACEMENT
     Dosage: 81 MG, 1X/DAY
     Route: 048
     Dates: start: 2016
  6. ONE-A-DAY NOS [Concomitant]
     Active Substance: MINERALS\VITAMINS
     Indication: VITAMIN SUPPLEMENTATION
     Dosage: 1 DF, DAILY
     Route: 048
  7. BABY ASPIRIN [Concomitant]
     Active Substance: ASPIRIN
     Indication: MYOCARDIAL INFARCTION
     Dosage: UNK
  8. CELEXA [Concomitant]
     Active Substance: CITALOPRAM HYDROBROMIDE
     Indication: ARTHRITIS
     Dosage: 200 MG, 2X/DAY
     Route: 048
  9. PREMARIN [Suspect]
     Active Substance: ESTROGENS, CONJUGATED
     Indication: OESTROGEN REPLACEMENT THERAPY
     Dosage: 1.25 MG, EVERY OTHER DAY (EVERY MORNING)
     Dates: start: 1974
  10. PREMARIN [Suspect]
     Active Substance: ESTROGENS, CONJUGATED
     Indication: NIGHT SWEATS
     Dosage: 1.25 MG, 1X/DAY (EVERY MORNING)
     Route: 048
     Dates: start: 2015
  11. PREMARIN [Suspect]
     Active Substance: ESTROGENS, CONJUGATED
     Indication: MENOPAUSE
  12. PREMARIN [Suspect]
     Active Substance: ESTROGENS, CONJUGATED
     Indication: INSOMNIA
  13. ATORVASTATIN [Concomitant]
     Active Substance: ATORVASTATIN
     Dosage: 50 MG, 1X/DAY

REACTIONS (12)
  - Hyperhidrosis [Unknown]
  - Arthralgia [Unknown]
  - Loss of consciousness [Unknown]
  - Depression [Recovered/Resolved]
  - Myocardial infarction [Unknown]
  - Pneumonia [Recovered/Resolved]
  - Insomnia [Not Recovered/Not Resolved]
  - Malaise [Unknown]
  - Tendonitis [Unknown]
  - Sinus disorder [Unknown]
  - Anxiety [Unknown]
  - Intentional product misuse [Unknown]

NARRATIVE: CASE EVENT DATE: 201501
